FAERS Safety Report 23757769 (Version 1)
Quarter: 2024Q2

REPORT INFORMATION
  Report Type: Report from Study
  Country: GT (occurrence: GT)
  Receive Date: 20240418
  Receipt Date: 20240418
  Transmission Date: 20240716
  Serious: Yes (Death)
  Sender: FDA-Public Use
  Company Number: GT-BAYER-2024A052327

PATIENT
  Age: 61 Year
  Sex: Male

DRUGS (1)
  1. NEXAVAR [Suspect]
     Active Substance: SORAFENIB
     Indication: Hepatocellular carcinoma
     Dosage: 1200 MG DAILY
     Dates: start: 20230914

REACTIONS (2)
  - Death [Fatal]
  - Overdose [None]

NARRATIVE: CASE EVENT DATE: 20230914
